FAERS Safety Report 24958792 (Version 1)
Quarter: 2025Q1

REPORT INFORMATION
  Report Type: Spontaneous
  Country: CA (occurrence: CA)
  Receive Date: 20250212
  Receipt Date: 20250212
  Transmission Date: 20250409
  Serious: Yes (Other)
  Sender: CSL BEHRING
  Company Number: CA-BEH-2025194980

PATIENT
  Age: 58 Year
  Sex: Male

DRUGS (5)
  1. HUMAN IMMUNOGLOBULIN G [Suspect]
     Active Substance: HUMAN IMMUNOGLOBULIN G
     Indication: Primary immunodeficiency syndrome
     Dosage: 8 G, QW(1 EVERY 1 WEEKS)
     Route: 065
  2. CHLORINE;CITRIC ACID;GLUCOSE;POTASSIUM;SODIUM [Concomitant]
  3. FOSCARNET SODIUM [Concomitant]
     Active Substance: FOSCARNET SODIUM
  4. SEPTRA [Concomitant]
     Active Substance: SULFAMETHOXAZOLE\TRIMETHOPRIM
  5. VITAMIN B12 [Concomitant]
     Active Substance: CYANOCOBALAMIN

REACTIONS (1)
  - Stem cell transplant [Unknown]
